FAERS Safety Report 5880354-X (Version None)
Quarter: 2008Q3

REPORT INFORMATION
  Report Type: 
  Country: None (occurrence: None)
  Receive Date: 20080912
  Receipt Date: 20080908
  Transmission Date: 20090109
  Serious: Yes (Hospitalization)
  Sender: FDA-Public Use
  Company Number: GB-PFIZER INC-2008076099

PATIENT
  Sex: Male

DRUGS (1)
  1. SALAZOPYRIN EN TABLETS [Suspect]

REACTIONS (4)
  - MALAISE [None]
  - NEUTROPENIC SEPSIS [None]
  - NEUTROPHIL COUNT DECREASED [None]
  - PNEUMONIA [None]
